FAERS Safety Report 9951056 (Version 2)
Quarter: 2014Q1

REPORT INFORMATION
  Report Type: Report from Study
  Country: FR (occurrence: FR)
  Receive Date: 20140304
  Receipt Date: 20140312
  Transmission Date: 20141002
  Serious: Yes (Hospitalization)
  Sender: FDA-Public Use
  Company Number: FR-SA-2014SA022382

PATIENT
  Age: 66 Year
  Sex: Male
  Weight: 76 kg

DRUGS (1)
  1. ELIGARD [Suspect]
     Indication: PRODUCT USED FOR UNKNOWN INDICATION
     Route: 065

REACTIONS (1)
  - Osteoarthritis [Recovered/Resolved]
